FAERS Safety Report 11051977 (Version 1)
Quarter: 2015Q2

REPORT INFORMATION
  Report Type: Spontaneous
  Country: US (occurrence: None)
  Receive Date: 20150420
  Receipt Date: 20150420
  Transmission Date: 20150821
  Serious: No
  Sender: FDA-Public Use
  Company Number: None

PATIENT
  Age: 76 Year
  Sex: Female
  Weight: 77.11 kg

DRUGS (1)
  1. VENLAFAXINE [Suspect]
     Active Substance: VENLAFAXINE HYDROCHLORIDE
     Dosage: ?3 DAYS?1 CAP, QD, ORAL
     Route: 048

REACTIONS (3)
  - Product substitution issue [None]
  - Product quality issue [None]
  - Oral mucosal exfoliation [None]

NARRATIVE: CASE EVENT DATE: 20150415
